FAERS Safety Report 21173463 (Version 1)
Quarter: 2022Q3

REPORT INFORMATION
  Report Type: Spontaneous
  Country: US (occurrence: None)
  Receive Date: 20220804
  Receipt Date: 20220804
  Transmission Date: 20221027
  Serious: Yes (Hospitalization, Disabling)
  Sender: FDA-Public Use
  Company Number: None

PATIENT
  Age: 72 Year
  Sex: Female
  Weight: 68.4 kg

DRUGS (1)
  1. AMLODIPINE [Suspect]
     Active Substance: AMLODIPINE BESYLATE
     Indication: Hypertension
     Dosage: OTHER QUANTITY : 2 TABLET(S);?FREQUENCY : DAILY;?
     Route: 048
     Dates: start: 20220626, end: 20220724

REACTIONS (16)
  - Gingival bleeding [None]
  - Gingival swelling [None]
  - Headache [None]
  - Nausea [None]
  - Dyspepsia [None]
  - Gastrooesophageal reflux disease [None]
  - Rhinalgia [None]
  - Paranasal sinus discomfort [None]
  - Paranasal sinus haemorrhage [None]
  - Swelling [None]
  - Eye swelling [None]
  - Dry eye [None]
  - Urticaria [None]
  - Heart rate increased [None]
  - Arterial occlusive disease [None]
  - Myocardial infarction [None]

NARRATIVE: CASE EVENT DATE: 20220701
